FAERS Safety Report 5275768-5 (Version None)
Quarter: 2007Q1

REPORT INFORMATION
  Report Type: 
  Country: None (occurrence: None)
  Receive Date: 20070326
  Receipt Date: 20070315
  Transmission Date: 20070707
  Serious: Yes (Hospitalization)
  Sender: FDA-Public Use
  Company Number: FR-GLAXOSMITHKLINE-B0457252A

PATIENT
  Age: 40 Year
  Sex: Male
  Weight: 70 kg

DRUGS (9)
  1. DEROXAT [Suspect]
     Dosage: 20MG PER DAY
     Route: 048
     Dates: start: 20061013, end: 20070125
  2. MINIRIN [Concomitant]
     Indication: DIABETES INSIPIDUS
     Dosage: .1MG THREE TIMES PER DAY
     Route: 048
     Dates: start: 20020501
  3. LEVOTHYROXINE SODIUM [Concomitant]
     Dosage: 175MCG PER DAY
     Route: 048
     Dates: start: 20020501
  4. HYDROCORTISONE [Concomitant]
     Dosage: 10MG TWICE PER DAY
     Route: 048
     Dates: start: 20020501
  5. ZOLPIDEM [Concomitant]
     Dosage: .5TAB TWICE PER DAY
     Route: 048
  6. XATRAL [Concomitant]
     Dosage: 10MG PER DAY
     Route: 048
     Dates: start: 20051001
  7. DITROPAN [Concomitant]
     Dosage: 2.5MG TWICE PER DAY
     Route: 048
     Dates: start: 20051001
  8. WATER [Concomitant]
     Dosage: 2L PER DAY
  9. XANAX [Concomitant]
     Dosage: .5TAB TWICE PER DAY
     Route: 048
     Dates: start: 20061001

REACTIONS (9)
  - COGNITIVE DISORDER [None]
  - CONFUSIONAL STATE [None]
  - FATIGUE [None]
  - HYPONATRAEMIA [None]
  - INAPPROPRIATE ANTIDIURETIC HORMONE SECRETION [None]
  - LETHARGY [None]
  - OEDEMA PERIPHERAL [None]
  - TACHYCARDIA [None]
  - WEIGHT INCREASED [None]
